FAERS Safety Report 21629809 (Version 2)
Quarter: 2022Q4

REPORT INFORMATION
  Report Type: Spontaneous
  Country: GB (occurrence: GB)
  Receive Date: 20221122
  Receipt Date: 20221129
  Transmission Date: 20230112
  Serious: Yes (Death, Hospitalization, Other)
  Sender: FDA-Public Use
  Company Number: GB-MHRA-MED-202211092204321910-FBMRQ

PATIENT

DRUGS (1)
  1. ACETAMINOPHEN [Suspect]
     Active Substance: ACETAMINOPHEN
     Indication: Product used for unknown indication
     Dosage: UNK
     Route: 065

REACTIONS (5)
  - Hepatic failure [Fatal]
  - Renal failure [Fatal]
  - Accidental overdose [Fatal]
  - Medication error [Fatal]
  - Product use complaint [Fatal]

NARRATIVE: CASE EVENT DATE: 20220703
